FAERS Safety Report 12157228 (Version 1)
Quarter: 2016Q1

REPORT INFORMATION
  Report Type: Spontaneous
  Country: US (occurrence: US)
  Receive Date: 20160308
  Receipt Date: 20160308
  Transmission Date: 20160526
  Serious: Yes (Other)
  Sender: FDA-Public Use
  Company Number: US-ROCHE-1721094

PATIENT
  Sex: Male

DRUGS (2)
  1. IBUPROFEN. [Concomitant]
     Active Substance: IBUPROFEN
  2. TAMIFLU [Suspect]
     Active Substance: OSELTAMIVIR PHOSPHATE
     Indication: INFLUENZA
     Route: 065

REACTIONS (8)
  - Petechiae [Not Recovered/Not Resolved]
  - Anxiety [Recovering/Resolving]
  - Eye swelling [Not Recovered/Not Resolved]
  - Haematemesis [Recovering/Resolving]
  - Frustration tolerance decreased [Recovering/Resolving]
  - Headache [Recovered/Resolved]
  - Confusional state [Recovered/Resolved]
  - Chest pain [Unknown]
